FAERS Safety Report 18907151 (Version 1)
Quarter: 2021Q1

REPORT INFORMATION
  Report Type: Not Available
  Country: US (occurrence: US)
  Receive Date: 20210218
  Receipt Date: 20210218
  Transmission Date: 20210420
  Serious: No
  Sender: FDA-Public Use
  Company Number: US-NEUROCRINE BIOSCIENCES INC.-2021NBI00580

PATIENT
  Age: 70 Year
  Sex: Female

DRUGS (18)
  1. MIRTAZAPINE. [Concomitant]
     Active Substance: MIRTAZAPINE
     Dates: end: 202010
  2. COLACE [Concomitant]
     Active Substance: DOCUSATE SODIUM
  3. LEVOTHYROXINE. [Concomitant]
     Active Substance: LEVOTHYROXINE
  4. DESVENLAFAXINE. [Concomitant]
     Active Substance: DESVENLAFAXINE
     Dates: end: 202011
  5. LORAZEPAM. [Concomitant]
     Active Substance: LORAZEPAM
  6. OXCARBAZEPINE. [Concomitant]
     Active Substance: OXCARBAZEPINE
  7. BUPROPION. [Concomitant]
     Active Substance: BUPROPION
  8. VITAMIN D [Concomitant]
     Active Substance: VITAMIN D NOS
  9. COLACE [Concomitant]
     Active Substance: DOCUSATE SODIUM
  10. CLOMIPRAMINE [Concomitant]
     Active Substance: CLOMIPRAMINE
  11. CLOMIPRAMINE [Concomitant]
     Active Substance: CLOMIPRAMINE
  12. OXCARBAZEPINE. [Concomitant]
     Active Substance: OXCARBAZEPINE
  13. LORAZEPAM. [Concomitant]
     Active Substance: LORAZEPAM
  14. DESVENLAFAXINE. [Concomitant]
     Active Substance: DESVENLAFAXINE
  15. VITAMIN D [Concomitant]
     Active Substance: VITAMIN D NOS
  16. INGREZZA [Suspect]
     Active Substance: VALBENAZINE
     Indication: TARDIVE DYSKINESIA
     Route: 048
     Dates: start: 20180205
  17. BUPROPION. [Concomitant]
     Active Substance: BUPROPION
  18. LEVOTHYROXINE. [Concomitant]
     Active Substance: LEVOTHYROXINE

REACTIONS (3)
  - Dry mouth [Unknown]
  - Dyskinesia [Unknown]
  - Muscle spasms [Unknown]

NARRATIVE: CASE EVENT DATE: 202012
